FAERS Safety Report 19867200 (Version 1)
Quarter: 2021Q3

REPORT INFORMATION
  Report Type: Spontaneous
  Country: HU (occurrence: HU)
  Receive Date: 20210922
  Receipt Date: 20210922
  Transmission Date: 20211014
  Serious: Yes (Hospitalization, Other)
  Sender: FDA-Public Use
  Company Number: HU-GLAXOSMITHKLINE-HU2021EME198004

PATIENT
  Sex: Female
  Weight: 50 kg

DRUGS (1)
  1. LAMICTAL [Suspect]
     Active Substance: LAMOTRIGINE
     Indication: PRODUCT USED FOR UNKNOWN INDICATION

REACTIONS (20)
  - Acute kidney injury [Unknown]
  - Toxic epidermal necrolysis [Unknown]
  - Hypernatraemia [Unknown]
  - Multiple organ dysfunction syndrome [Unknown]
  - Staphylococcal sepsis [Unknown]
  - Delirium [Unknown]
  - Anaemia [Unknown]
  - Hypothermia [Unknown]
  - Conjunctival deposit [Unknown]
  - Eyelid degenerative disorder [Unknown]
  - Withdrawal syndrome [Unknown]
  - Electrolyte imbalance [Unknown]
  - Muscle spasms [Unknown]
  - Acid-base balance disorder mixed [Unknown]
  - Acute respiratory distress syndrome [Unknown]
  - Drug hypersensitivity [Unknown]
  - Blood osmolarity increased [Unknown]
  - Decubitus ulcer [Unknown]
  - Conjunctival disorder [Unknown]
  - Sepsis [Unknown]
